FAERS Safety Report 5626405-9 (Version None)
Quarter: 2008Q1

REPORT INFORMATION
  Report Type: 
  Country: None (occurrence: None)
  Receive Date: 20080214
  Receipt Date: 20080214
  Transmission Date: 20080703
  Serious: Yes (Other)
  Sender: FDA-Public Use
  Company Number: None

PATIENT
  Age: 70 Year
  Sex: Female
  Weight: 71.3508 kg

DRUGS (3)
  1. HEPARIN [Suspect]
     Indication: ANTICOAGULANT THERAPY
     Dosage: 2000 UNITS 3 TIMES PER WEEK HEMODIALYSIS
     Route: 010
     Dates: start: 20060411, end: 20080213
  2. HEPARIN [Suspect]
     Indication: HAEMODIALYSIS
     Dosage: 2000 UNITS 3 TIMES PER WEEK HEMODIALYSIS
     Route: 010
     Dates: start: 20060411, end: 20080213
  3. .. [Suspect]

REACTIONS (3)
  - DIZZINESS [None]
  - HAEMODIALYSIS [None]
  - NAUSEA [None]
